FAERS Safety Report 15322038 (Version 2)
Quarter: 2018Q3

REPORT INFORMATION
  Report Type: Report from Study
  Country: US (occurrence: US)
  Receive Date: 20180827
  Receipt Date: 20180831
  Transmission Date: 20181010
  Serious: No
  Sender: FDA-Public Use
  Company Number: US-SHIRE-US201832910

PATIENT
  Age: 78 Year
  Sex: Female

DRUGS (1)
  1. XIIDRA [Suspect]
     Active Substance: LIFITEGRAST
     Indication: PRODUCT USED FOR UNKNOWN INDICATION
     Dosage: 0.2 ML, 1 DROP/MIN, 1 DROP/NIGHT
     Route: 065
     Dates: start: 20180823

REACTIONS (4)
  - Instillation site reaction [Recovered/Resolved]
  - Instillation site pain [Recovered/Resolved]
  - Vision blurred [Recovered/Resolved]
  - Eye irritation [Unknown]

NARRATIVE: CASE EVENT DATE: 20180823
